FAERS Safety Report 6410298-6 (Version None)
Quarter: 2009Q4

REPORT INFORMATION
  Report Type: 
  Country: None (occurrence: None)
  Receive Date: 20091022
  Receipt Date: 20091019
  Transmission Date: 20100525
  Serious: Yes (Hospitalization)
  Sender: FDA-Public Use
  Company Number: B0598850A

PATIENT
  Sex: Female

DRUGS (11)
  1. LAMOTRIGINE [Suspect]
     Indication: DEPRESSION
     Route: 048
  2. GLUCOPHAGE [Suspect]
     Route: 048
  3. BLINDED STUDY MEDICATION [Suspect]
     Route: 048
     Dates: start: 20090806
  4. TROMBYL [Concomitant]
     Route: 065
  5. SELOKEN ZOC [Concomitant]
     Route: 065
  6. EDRONAX [Concomitant]
     Route: 065
  7. TRYPTIZOL [Concomitant]
     Route: 065
  8. COZAAR [Concomitant]
     Route: 065
     Dates: start: 20090330
  9. SIMVASTATIN [Concomitant]
     Route: 065
     Dates: start: 20090829
  10. PERSANTINE [Concomitant]
     Route: 065
     Dates: start: 20090828
  11. VAGIFEM [Concomitant]
     Route: 065

REACTIONS (1)
  - VERTIGO [None]
